FAERS Safety Report 9439097 (Version 2)
Quarter: 2013Q3

REPORT INFORMATION
  Report Type: Report from Study
  Country: BR (occurrence: BR)
  Receive Date: 20130802
  Receipt Date: 20130827
  Transmission Date: 20140515
  Serious: Yes (Death, Hospitalization, Other)
  Sender: FDA-Public Use
  Company Number: BR-ABBOTT-13P-020-1105714-00

PATIENT
  Age: 78 Year
  Sex: Male

DRUGS (6)
  1. HUMIRA [Suspect]
     Indication: RHEUMATOID ARTHRITIS
     Route: 058
  2. ARAVA [Suspect]
     Indication: ARTHRALGIA
     Dates: start: 199908
  3. METHOTREXATE [Suspect]
     Indication: PRODUCT USED FOR UNKNOWN INDICATION
  4. CAPTOPRIL [Concomitant]
     Indication: BLOOD PRESSURE ABNORMAL
     Dates: start: 199908
  5. HIDANTAL [Concomitant]
     Indication: PRODUCT USED FOR UNKNOWN INDICATION
     Dates: start: 199908
  6. UNKNOWN DRUG [Concomitant]
     Indication: PRODUCT USED FOR UNKNOWN INDICATION
     Dates: start: 199908

REACTIONS (12)
  - Hepatic cirrhosis [Fatal]
  - Pneumonia [Fatal]
  - Pulmonary oedema [Unknown]
  - Renal failure [Unknown]
  - Hepatic failure [Unknown]
  - Lung infection [Unknown]
  - Hepatic failure [Unknown]
  - Abdominal pain [Unknown]
  - Pyrexia [Unknown]
  - Dysuria [Unknown]
  - Chromaturia [Unknown]
  - Vomiting [Unknown]
